FAERS Safety Report 9426706 (Version 1)
Quarter: 2013Q3

REPORT INFORMATION
  Report Type: Spontaneous
  Country: US (occurrence: None)
  Receive Date: 20130729
  Receipt Date: 20130729
  Transmission Date: 20140515
  Serious: Yes (Other)
  Sender: FDA-Public Use
  Company Number: None

PATIENT
  Age: 54 Year
  Sex: Female

DRUGS (1)
  1. LOSARTAN [Suspect]
     Indication: HYPERTENSION
     Dosage: 1, DAY, PO
     Route: 048
     Dates: start: 20130707, end: 20130722

REACTIONS (7)
  - Drug ineffective [None]
  - Hypertension [None]
  - Tinnitus [None]
  - Abdominal pain upper [None]
  - Dizziness [None]
  - Fluid retention [None]
  - Product quality issue [None]
